FAERS Safety Report 21349806 (Version 1)
Quarter: 2022Q3

REPORT INFORMATION
  Report Type: Spontaneous
  Country: JP (occurrence: JP)
  Receive Date: 20220919
  Receipt Date: 20220919
  Transmission Date: 20221026
  Serious: Yes (Other)
  Sender: FDA-Public Use
  Company Number: JP-BAYER-2022A127429

PATIENT
  Age: 61 Year
  Sex: Male

DRUGS (1)
  1. NUBEQA [Suspect]
     Active Substance: DAROLUTAMIDE
     Dosage: UNK
     Dates: start: 20220111

REACTIONS (3)
  - Metastases to bone [None]
  - Disease progression [None]
  - Prostatic specific antigen increased [None]

NARRATIVE: CASE EVENT DATE: 20220101
